FAERS Safety Report 24691784 (Version 1)
Quarter: 2024Q4

REPORT INFORMATION
  Report Type: Spontaneous
  Country: CN (occurrence: CN)
  Receive Date: 20241203
  Receipt Date: 20241203
  Transmission Date: 20250115
  Serious: Yes (Hospitalization)
  Sender: MYLAN
  Company Number: CN-MYLANLABS-2024M1107426

PATIENT
  Age: 85 Year
  Sex: Female
  Weight: 54 kg

DRUGS (1)
  1. CELEBREX [Suspect]
     Active Substance: CELECOXIB
     Indication: Intervertebral disc protrusion
     Dosage: 200 MILLIGRAM, QD
     Route: 048
     Dates: start: 20240207, end: 20240701

REACTIONS (1)
  - Intestinal ulcer [Recovering/Resolving]

NARRATIVE: CASE EVENT DATE: 20240701
